FAERS Safety Report 6172290-9 (Version None)
Quarter: 2009Q2

REPORT INFORMATION
  Report Type: 
  Country: None (occurrence: None)
  Receive Date: 20090429
  Receipt Date: 20090423
  Transmission Date: 20091009
  Serious: Yes (Other)
  Sender: FDA-Public Use
  Company Number: SN-JNJFOC-20090405397

PATIENT
  Sex: Female

DRUGS (1)
  1. KETODERM [Suspect]
     Indication: FUNGAL INFECTION
     Route: 003

REACTIONS (2)
  - BURNING SENSATION [None]
  - DRUG DISPENSING ERROR [None]
